FAERS Safety Report 5240261-2 (Version None)
Quarter: 2007Q1

REPORT INFORMATION
  Report Type: 
  Country: None (occurrence: None)
  Receive Date: 20061208
  Receipt Date: 20050207
  Transmission Date: 20070707
  Serious: Yes (Other)
  Sender: FDA-Public Use
  Company Number: 2005UW02137

PATIENT
  Age: 82 Year
  Sex: Female
  Weight: 52.163 kg

DRUGS (4)
  1. CRESTOR [Suspect]
     Indication: HYPERCHOLESTEROLAEMIA
     Dosage: 10 MG QD PO
     Route: 048
  2. ASPIRIN [Concomitant]
  3. CAPTOPRIL [Concomitant]
  4. VITAMINS [Concomitant]

REACTIONS (2)
  - PRURITUS [None]
  - SKIN DISORDER [None]
